FAERS Safety Report 20409041 (Version 2)
Quarter: 2022Q2

REPORT INFORMATION
  Report Type: Spontaneous
  Country: CA (occurrence: None)
  Receive Date: 20220201
  Receipt Date: 20220407
  Transmission Date: 20220720
  Serious: Yes (Death, Hospitalization, Disabling)
  Sender: FDA-Public Use
  Company Number: CA-ROCHE-3008309

PATIENT
  Age: 60 Year
  Sex: Female

DRUGS (2)
  1. ENSPRYNG [Suspect]
     Active Substance: SATRALIZUMAB-MWGE
     Indication: Neuromyelitis optica spectrum disorder
     Route: 065
     Dates: start: 202010, end: 202106
  2. PREDNISONE [Suspect]
     Active Substance: PREDNISONE
     Indication: Neuromyelitis optica spectrum disorder
     Route: 065

REACTIONS (3)
  - Brain injury [Fatal]
  - Neutropenia [Unknown]
  - Sepsis [Unknown]

NARRATIVE: CASE EVENT DATE: 20210706
